FAERS Safety Report 8018343-1 (Version None)
Quarter: 2012Q1

REPORT INFORMATION
  Report Type: 
  Country: None (occurrence: None)
  Receive Date: 20120103
  Receipt Date: 20111228
  Transmission Date: 20120608
  Serious: Yes (Hospitalization, Congenital Anomaly, Other)
  Sender: FDA-Public Use
  Company Number: US-PFIZER INC-2011195278

PATIENT
  Sex: Male
  Weight: 3.2 kg

DRUGS (4)
  1. ZOLOFT [Suspect]
     Dosage: 50 MG, UNK
     Route: 064
  2. RHOGAM [Concomitant]
     Route: 064
  3. ZOLOFT [Suspect]
     Dosage: 100 MG, UNK
     Route: 064
  4. SYNTHROID [Concomitant]
     Route: 064

REACTIONS (22)
  - MATERNAL EXPOSURE TIMING UNSPECIFIED [None]
  - ATRIAL SEPTAL DEFECT [None]
  - AORTIC VALVE ATRESIA [None]
  - MITRAL VALVE ATRESIA [None]
  - JAUNDICE NEONATAL [None]
  - COARCTATION OF THE AORTA [None]
  - VENTRICULAR SEPTAL DEFECT [None]
  - HYDROPS FOETALIS [None]
  - PATENT DUCTUS ARTERIOSUS [None]
  - RESPIRATORY FAILURE [None]
  - TRANSIENT TACHYPNOEA OF THE NEWBORN [None]
  - RIGHT VENTRICULAR HYPERTROPHY [None]
  - AORTA HYPOPLASIA [None]
  - FEEDING DISORDER NEONATAL [None]
  - GASTROOESOPHAGEAL REFLUX DISEASE [None]
  - TRICUSPID VALVE INCOMPETENCE [None]
  - SEPSIS [None]
  - CARDIAC FAILURE CONGESTIVE [None]
  - ATRIOVENTRICULAR BLOCK FIRST DEGREE [None]
  - RIGHT VENTRICULAR DYSFUNCTION [None]
  - CONGENITAL PULMONARY ARTERY ANOMALY [None]
  - HYPOPLASTIC LEFT HEART SYNDROME [None]
